FAERS Safety Report 5466145-2 (Version None)
Quarter: 2007Q3

REPORT INFORMATION
  Report Type: 
  Country: None (occurrence: None)
  Receive Date: 20070919
  Receipt Date: 20070910
  Transmission Date: 20080115
  Serious: Yes (Hospitalization)
  Sender: FDA-Public Use
  Company Number: 2007P1000641

PATIENT
  Age: 45 Year
  Sex: Male

DRUGS (6)
  1. BUSULFAN (BUSULFAN) [Suspect]
     Indication: STEM CELL TRANSPLANT
     Dosage: 28 ML; QD; IV
     Route: 042
     Dates: start: 20070516, end: 20070519
  2. VALPROATE SODIUM [Concomitant]
  3. FLUDARABINE PHOSPHATE [Concomitant]
  4. LENOGRASTIM [Concomitant]
  5. TACROLIMUS [Concomitant]
  6. MELPHALAN [Concomitant]

REACTIONS (4)
  - ANOREXIA [None]
  - DIARRHOEA [None]
  - ENTEROCOCCAL SEPSIS [None]
  - PNEUMONIA PARAINFLUENZAE VIRAL [None]
